FAERS Safety Report 19979758 (Version 1)
Quarter: 2021Q4

REPORT INFORMATION
  Report Type: Spontaneous
  Country: IN (occurrence: IN)
  Receive Date: 20211021
  Receipt Date: 20211021
  Transmission Date: 20220303
  Serious: Yes (Other)
  Sender: FDA-Public Use
  Company Number: IN-STRIDES ARCOLAB LIMITED-2021SP028839

PATIENT
  Age: 26 Year
  Sex: Female

DRUGS (2)
  1. ACETAZOLAMIDE [Suspect]
     Active Substance: ACETAZOLAMIDE
     Indication: Idiopathic intracranial hypertension
     Dosage: UNK, FOR 1 MONTH
     Route: 065
  2. ACETAZOLAMIDE [Suspect]
     Active Substance: ACETAZOLAMIDE
     Indication: Intraocular pressure increased
     Dosage: UNK, THE DOSE OF ACETAZOLAMIDE WAS INCREASED TO CONTROL IOP
     Route: 065

REACTIONS (4)
  - Angle closure glaucoma [Recovered/Resolved]
  - Paradoxical drug reaction [Recovered/Resolved]
  - Choroidal effusion [Recovered/Resolved]
  - Off label use [Unknown]
